FAERS Safety Report 9374719 (Version 1)
Quarter: 2013Q2

REPORT INFORMATION
  Report Type: Spontaneous
  Country: CN (occurrence: CN)
  Receive Date: 20130628
  Receipt Date: 20130628
  Transmission Date: 20140414
  Serious: Yes (Hospitalization)
  Sender: FDA-Public Use
  Company Number: CN-JNJFOC-20130614843

PATIENT
  Age: 40 Year
  Sex: Male

DRUGS (3)
  1. RISPERDAL [Suspect]
     Indication: MENTAL DISORDER
     Route: 048
  2. RISPERDAL [Suspect]
     Indication: MENTAL DISORDER
     Route: 048
  3. RISPERDAL [Suspect]
     Indication: MENTAL DISORDER
     Route: 048
     Dates: start: 20110501, end: 20110601

REACTIONS (4)
  - Persecutory delusion [Unknown]
  - Hallucination, auditory [Unknown]
  - Hepatic function abnormal [Unknown]
  - Poor quality sleep [Unknown]
